FAERS Safety Report 12674365 (Version 1)
Quarter: 2016Q3

REPORT INFORMATION
  Report Type: Spontaneous
  Country: US (occurrence: US)
  Receive Date: 20160822
  Receipt Date: 20160822
  Transmission Date: 20161109
  Serious: No
  Sender: FDA-Public Use
  Company Number: US-BEH-2015056133

PATIENT
  Sex: Male
  Weight: 79.38 kg

DRUGS (19)
  1. ROBAXIN-750 [Concomitant]
  2. HEPARIN 100 UNITS/ML [Concomitant]
  3. NORMAL SALINE [Concomitant]
     Active Substance: SODIUM CHLORIDE
  4. EPI-PEN AUTOINJECTOR [Concomitant]
  5. OXYCODONE-ACETAMINOPHEN 5-325 [Concomitant]
     Active Substance: ACETAMINOPHEN\OXYCODONE HYDROCHLORIDE
  6. DUONEB 2.5-0.5 MG/3ML [Concomitant]
  7. LMX [Concomitant]
     Active Substance: LIDOCAINE
  8. SYMBICORT 160-4.5 MCG INHALER [Concomitant]
  9. STERILE WATER FOR INJECTION [Concomitant]
     Active Substance: WATER
  10. SODIUM CHLORIDE 0.9% [Concomitant]
     Active Substance: SODIUM CHLORIDE
  11. METHOCARBAMOL 750 MG [Concomitant]
  12. DALIRESP 500 MCG [Concomitant]
  13. VITAMIN D3 1000 UNIT [Concomitant]
  14. DIPHENHYDRAMINE. [Concomitant]
     Active Substance: DIPHENHYDRAMINE
  15. PROVENTIL HFA 90 MCG INHALER [Concomitant]
  16. XANAX [Concomitant]
     Active Substance: ALPRAZOLAM
  17. NEXIUM 40 MG [Concomitant]
  18. ZEMAIRA [Suspect]
     Active Substance: .ALPHA.1-PROTEINASE INHIBITOR HUMAN
     Indication: ALPHA-1 ANTI-TRYPSIN DEFICIENCY
     Route: 042
     Dates: start: 20080909
  19. CATHFLO ACTIVASE [Concomitant]
     Active Substance: ALTEPLASE

REACTIONS (3)
  - Thermal burn [Unknown]
  - Contusion [Unknown]
  - Fall [Unknown]
